FAERS Safety Report 5144363-0 (Version None)
Quarter: 2006Q4

REPORT INFORMATION
  Report Type: 
  Country: None (occurrence: None)
  Receive Date: 20061030
  Receipt Date: 20061018
  Transmission Date: 20070319
  Serious: Yes (Life-Threatening, Other)
  Sender: FDA-Public Use
  Company Number: 230130

PATIENT
  Age: 72 Year
  Sex: Male
  Weight: 90.7 kg

DRUGS (2)
  1. AVASTIN [Suspect]
     Indication: NON-SMALL CELL LUNG CANCER
     Dates: end: 20060119
  2. ALIMTA [Concomitant]

REACTIONS (5)
  - ABDOMINAL PAIN [None]
  - ACUTE ABDOMEN [None]
  - DIVERTICULAR PERFORATION [None]
  - DIVERTICULITIS [None]
  - PERITONITIS [None]
